FAERS Safety Report 9133553 (Version 1)
Quarter: 2013Q1

REPORT INFORMATION
  Report Type: Spontaneous
  Country: US (occurrence: US)
  Receive Date: 20130115
  Receipt Date: 20130115
  Transmission Date: 20140127
  Serious: Yes (Other)
  Sender: FDA-Public Use
  Company Number: US-RB-044909-12

PATIENT
  Age: 50 Year
  Sex: Male

DRUGS (7)
  1. SUBOXONE FILM [Suspect]
     Indication: DRUG DEPENDENCE
     Dosage: SUBOXONE FILM
     Route: 060
     Dates: start: 2010
  2. SUBOXONE TABLET [Suspect]
     Indication: DRUG DEPENDENCE
     Route: 060
     Dates: start: 2007, end: 2010
  3. CLONAZEPAM [Concomitant]
     Indication: PANIC ATTACK
     Route: 065
  4. PRILOSEC [Concomitant]
     Indication: ABDOMINAL DISCOMFORT
     Route: 065
  5. LEVOTHYROXINE SODIUM [Concomitant]
     Indication: THYROID DISORDER
     Dosage: 50 MCG DAILY
     Route: 065
     Dates: start: 201207
  6. OMEPRAZOLE [Concomitant]
     Indication: GASTROOESOPHAGEAL REFLUX DISEASE
     Dosage: UNKNOWN DOSING DETAILS
     Route: 065
  7. KLONOPIN [Concomitant]
     Indication: ANXIETY
     Route: 065
     Dates: start: 2008

REACTIONS (11)
  - Suicidal ideation [Recovered/Resolved]
  - Feeling abnormal [Unknown]
  - Blood testosterone decreased [Not Recovered/Not Resolved]
  - Thyroid disorder [Not Recovered/Not Resolved]
  - Drug dependence [Not Recovered/Not Resolved]
  - Drug withdrawal syndrome [Not Recovered/Not Resolved]
  - Underdose [Not Recovered/Not Resolved]
  - Decreased appetite [Not Recovered/Not Resolved]
  - Crying [Not Recovered/Not Resolved]
  - Anaemia [Not Recovered/Not Resolved]
  - Asthenia [Not Recovered/Not Resolved]
